FAERS Safety Report 18972877 (Version 1)
Quarter: 2021Q1

REPORT INFORMATION
  Report Type: Spontaneous
  Country: US (occurrence: US)
  Receive Date: 20210305
  Receipt Date: 20210305
  Transmission Date: 20210420
  Serious: Yes (Other)
  Sender: FDA-Public Use
  Company Number: None

PATIENT
  Age: 56 Year
  Weight: 79.38 kg

DRUGS (1)
  1. GAMUNEX?C [Suspect]
     Active Substance: HUMAN IMMUNOGLOBULIN G
     Indication: CHRONIC INFLAMMATORY DEMYELINATING POLYRADICULONEUROPATHY
     Dosage: ?          OTHER FREQUENCY:Q D X 2 DAYS;OTHER ROUTE:IV?
     Dates: start: 20210301, end: 20210302

REACTIONS (2)
  - Recalled product administered [None]
  - Hyperhidrosis [None]

NARRATIVE: CASE EVENT DATE: 20210302
